FAERS Safety Report 5269412-0 (Version None)
Quarter: 2007Q1

REPORT INFORMATION
  Report Type: 
  Country: None (occurrence: None)
  Receive Date: 20070316
  Receipt Date: 20070316
  Transmission Date: 20070707
  Serious: No
  Sender: FDA-Public Use
  Company Number: None

PATIENT
  Sex: Female
  Weight: 50.8029 kg

DRUGS (2)
  1. HYOSCYAMINE 0.125MG ONE BID PO [Suspect]
     Indication: DIVERTICULUM
     Dosage: 0.125 MG BID PO
     Route: 048
     Dates: start: 20060301
  2. HYOSCYAMINE 0.125MG ONE BID PO [Suspect]
     Indication: IRRITABLE BOWEL SYNDROME
     Dosage: 0.125 MG BID PO
     Route: 048
     Dates: start: 20060301

REACTIONS (2)
  - DRUG INEFFECTIVE [None]
  - THERAPEUTIC RESPONSE UNEXPECTED WITH DRUG SUBSTITUTION [None]
